FAERS Safety Report 5081586-3 (Version None)
Quarter: 2006Q3

REPORT INFORMATION
  Report Type: 
  Country: None (occurrence: None)
  Receive Date: 20060811
  Receipt Date: 20060731
  Transmission Date: 20061208
  Serious: Yes (Other)
  Sender: FDA-Public Use
  Company Number: S06-USA-03016-01

PATIENT
  Age: 68 Year
  Sex: Female
  Weight: 85.2762 kg

DRUGS (3)
  1. LEVOTHROID [Suspect]
     Indication: HYPOTHYROIDISM
     Dosage: 125 MCG QD PO
     Route: 048
     Dates: start: 20060501
  2. LEVOTHROID [Suspect]
     Indication: HYPOTHYROIDISM
     Dosage: 150 MCG QD PO
     Route: 048
     Dates: start: 20040101, end: 20060501
  3. MULTIPLE MEDICATIONS [Concomitant]

REACTIONS (3)
  - CHEST PAIN [None]
  - GASTROOESOPHAGEAL REFLUX DISEASE [None]
  - WEIGHT INCREASED [None]
